FAERS Safety Report 18742031 (Version 2)
Quarter: 2021Q1

REPORT INFORMATION
  Report Type: Spontaneous
  Country: US (occurrence: US)
  Receive Date: 20210114
  Receipt Date: 20210120
  Transmission Date: 20210419
  Serious: Yes (Death)
  Sender: FDA-Public Use
  Company Number: US-PFIZER INC-2021020772

PATIENT
  Age: 77 Year
  Sex: Female

DRUGS (3)
  1. DROPERIDOL. [Suspect]
     Active Substance: DROPERIDOL
     Dosage: 10 DROPS IN THE MORNING AND 20 DROPS IN THE EVENING.
  2. HALOPERIDOL. [Concomitant]
     Active Substance: HALOPERIDOL
     Dosage: 30 DROP, DAILY
  3. ENALAPRIL [Concomitant]
     Active Substance: ENALAPRIL
     Dosage: UNK

REACTIONS (3)
  - Seizure [Fatal]
  - Cardiac arrest [Fatal]
  - Bundle branch block left [Fatal]
